FAERS Safety Report 5160961-2 (Version None)
Quarter: 2006Q4

REPORT INFORMATION
  Report Type: 
  Country: None (occurrence: None)
  Receive Date: 20061130
  Receipt Date: 20060313
  Transmission Date: 20070319
  Serious: No
  Sender: FDA-Public Use
  Company Number: US-BRISTOL-MYERS SQUIBB COMPANY-13313481

PATIENT

DRUGS (1)
  1. AVALIDE [Suspect]

REACTIONS (3)
  - BACK PAIN [None]
  - MUSCLE TIGHTNESS [None]
  - MYALGIA [None]
